FAERS Safety Report 15819074 (Version 2)
Quarter: 2020Q1

REPORT INFORMATION
  Report Type: Spontaneous
  Country: US (occurrence: US)
  Receive Date: 20190114
  Receipt Date: 20200225
  Transmission Date: 20200409
  Serious: No
  Sender: FDA-Public Use
  Company Number: US-ROCHE-2228475

PATIENT
  Age: 11 Year
  Sex: Female
  Weight: 35.41 kg

DRUGS (7)
  1. NUTROPIN [Suspect]
     Active Substance: SOMATROPIN
     Dosage: ONGOING: NO
     Route: 058
     Dates: start: 20180813, end: 20181012
  2. NUTROPIN [Suspect]
     Active Substance: SOMATROPIN
     Dosage: ONGOING: NO
     Route: 058
     Dates: start: 201804, end: 20180618
  3. NUTROPIN [Suspect]
     Active Substance: SOMATROPIN
     Dosage: ONGOING: YES
     Route: 058
     Dates: start: 20181229
  4. NUTROPIN [Suspect]
     Active Substance: SOMATROPIN
     Indication: BODY HEIGHT BELOW NORMAL
     Dosage: ONGOING: NO
     Route: 058
     Dates: start: 201708, end: 201804
  5. NUTROPIN [Suspect]
     Active Substance: SOMATROPIN
     Dosage: ONGOING: NO
     Route: 058
     Dates: start: 20181210, end: 20181222
  6. NUTROPIN [Suspect]
     Active Substance: SOMATROPIN
     Indication: GROWTH HORMONE DEFICIENCY
     Dosage: 0.24 MG PER KG PER WEEK
     Route: 058
     Dates: start: 201709
  7. NUTROPIN [Suspect]
     Active Substance: SOMATROPIN
     Dosage: ONGOING: NO
     Route: 058
     Dates: start: 20181013, end: 20181120

REACTIONS (4)
  - Blood creatine phosphokinase MM increased [Unknown]
  - Blood creatine phosphokinase increased [Not Recovered/Not Resolved]
  - Back pain [Recovered/Resolved]
  - Blood creatine phosphokinase BB increased [Unknown]

NARRATIVE: CASE EVENT DATE: 201711
